FAERS Safety Report 18241363 (Version 2)
Quarter: 2020Q4

REPORT INFORMATION
  Report Type: Report from Study
  Country: US (occurrence: US)
  Receive Date: 20200908
  Receipt Date: 20201023
  Transmission Date: 20210113
  Serious: Yes (Other)
  Sender: FDA-Public Use
  Company Number: US-HBP-2020US020949

PATIENT
  Sex: Male

DRUGS (2)
  1. VALCHLOR [Suspect]
     Active Substance: MECHLORETHAMINE
     Indication: CUTANEOUS T-CELL LYMPHOMA
     Dosage: THIN FILM, QD
     Route: 061
     Dates: start: 201911, end: 20200723
  2. ACITRETIN. [Suspect]
     Active Substance: ACITRETIN
     Dosage: 25 MILLIGRAM, QD
     Route: 048

REACTIONS (4)
  - Beta haemolytic streptococcal infection [Unknown]
  - Nonspecific reaction [Unknown]
  - Acinetobacter infection [Recovered/Resolved]
  - Skin bacterial infection [Unknown]
